FAERS Safety Report 10075494 (Version 1)
Quarter: 2014Q2

REPORT INFORMATION
  Report Type: Report from Study
  Country: CA (occurrence: CA)
  Receive Date: 20140414
  Receipt Date: 20140414
  Transmission Date: 20141212
  Serious: Yes (Other)
  Sender: FDA-Public Use
  Company Number: CA-JNJFOC-20140405558

PATIENT
  Age: 24 Year
  Sex: Female
  Weight: 43.2 kg

DRUGS (4)
  1. REMICADE [Suspect]
     Indication: CROHN^S DISEASE
     Route: 042
     Dates: start: 20140221
  2. PANTOLOC [Concomitant]
     Route: 065
  3. ALESSE [Concomitant]
     Route: 065
  4. OXYCODONE [Concomitant]
     Route: 065

REACTIONS (1)
  - Ulcer haemorrhage [Recovering/Resolving]
